FAERS Safety Report 24291923 (Version 2)
Quarter: 2024Q4

REPORT INFORMATION
  Report Type: Spontaneous
  Country: US (occurrence: US)
  Receive Date: 20240906
  Receipt Date: 20241007
  Transmission Date: 20250114
  Serious: No
  Sender: DOMPE FARMACEUTICI
  Company Number: US-FARMAPROD-202408-3083

PATIENT
  Age: 45 Year
  Sex: Female

DRUGS (1)
  1. OXERVATE [Suspect]
     Active Substance: CENEGERMIN-BKBJ
     Indication: Keratitis
     Route: 047
     Dates: start: 20240814, end: 2024

REACTIONS (1)
  - Iris neovascularisation [Unknown]

NARRATIVE: CASE EVENT DATE: 20240101
